FAERS Safety Report 23465901 (Version 1)
Quarter: 2024Q1

REPORT INFORMATION
  Report Type: Report from Study
  Country: IT (occurrence: IT)
  Receive Date: 20240201
  Receipt Date: 20240201
  Transmission Date: 20240409
  Serious: Yes (Other)
  Sender: FDA-Public Use
  Company Number: IT-UCBSA-2024004755

PATIENT
  Age: 33 Year
  Sex: Female

DRUGS (4)
  1. KEPPRA [Suspect]
     Active Substance: LEVETIRACETAM
     Indication: Seizure
     Dosage: 2X/DAY (BID)
     Dates: start: 202206
  2. LAMICTAL [Concomitant]
     Active Substance: LAMOTRIGINE
     Indication: Epilepsy
     Dosage: UNK
  3. CLOBAZAM [Concomitant]
     Active Substance: CLOBAZAM
     Indication: Epilepsy
     Dosage: UNK
  4. RIVOTRIL [Concomitant]
     Active Substance: CLONAZEPAM
     Indication: Epilepsy
     Dosage: UNK

REACTIONS (2)
  - Seizure [Not Recovered/Not Resolved]
  - Drug ineffective [Unknown]

NARRATIVE: CASE EVENT DATE: 20220801
